FAERS Safety Report 7267324-4 (Version None)
Quarter: 2011Q1

REPORT INFORMATION
  Report Type: 
  Country: None (occurrence: None)
  Receive Date: 20110201
  Receipt Date: 20100128
  Transmission Date: 20110831
  Serious: No
  Sender: FDA-Public Use
  Company Number: A0841869A

PATIENT
  Age: 50 Year
  Sex: Female

DRUGS (9)
  1. ARIXTRA [Suspect]
     Dosage: 7.5MG PER DAY
     Route: 058
  2. LASIX [Concomitant]
  3. SIMVASTATIN [Concomitant]
  4. SYNTHROID [Concomitant]
  5. PREDNISONE [Concomitant]
  6. COUMADIN [Concomitant]
  7. PLAVIX [Concomitant]
  8. CARDURA [Concomitant]
  9. LOVENOX [Concomitant]
     Dates: end: 20091101

REACTIONS (2)
  - RASH MACULAR [None]
  - SKIN DISCOLOURATION [None]
